FAERS Safety Report 6069522-4 (Version None)
Quarter: 2009Q1

REPORT INFORMATION
  Report Type: 
  Country: None (occurrence: None)
  Receive Date: 20090204
  Receipt Date: 20090204
  Transmission Date: 20090719
  Serious: Yes (Other)
  Sender: FDA-Public Use
  Company Number: None

PATIENT
  Sex: Female
  Weight: 24.9 kg

DRUGS (1)
  1. PROAIR HFA [Suspect]
     Indication: ASTHMA
     Dosage: 2 PUFFS 4H INHAL
     Route: 055
     Dates: start: 20090130, end: 20090130

REACTIONS (2)
  - PRODUCT QUALITY ISSUE [None]
  - TYPE I HYPERSENSITIVITY [None]
